FAERS Safety Report 5945905-5 (Version None)
Quarter: 2008Q4

REPORT INFORMATION
  Report Type: 
  Country: None (occurrence: None)
  Receive Date: 20081106
  Receipt Date: 20081027
  Transmission Date: 20090506
  Serious: Yes (Hospitalization)
  Sender: FDA-Public Use
  Company Number: 2008-185941-NL

PATIENT
  Age: 46 Year
  Sex: Male

DRUGS (2)
  1. MIRTAZAPINE [Suspect]
     Dosage: DF ORAL
     Route: 048
     Dates: start: 20071001, end: 20071213
  2. MIRTAZAPINE [Suspect]
     Dosage: DF ORAL
     Route: 048
     Dates: start: 20071210, end: 20071213

REACTIONS (3)
  - CONDUCT DISORDER [None]
  - GRAND MAL CONVULSION [None]
  - LOSS OF CONSCIOUSNESS [None]
